FAERS Safety Report 9255259 (Version 1)
Quarter: 2013Q1

REPORT INFORMATION
  Report Type: Spontaneous
  Country: US (occurrence: None)
  Receive Date: 20121212
  Receipt Date: 20121212
  Transmission Date: 20140127
  Serious: No
  Sender: FDA-Public Use
  Company Number: 1208USA011228

PATIENT
  Sex: Male

DRUGS (3)
  1. PEGINTRON [Suspect]
     Indication: HEPATITIS C
     Route: 058
     Dates: start: 20120309, end: 20120620
  2. REBETOL [Suspect]
     Route: 048
     Dates: start: 20120309, end: 20120620
  3. VICTRELIS [Suspect]
     Route: 048
     Dates: start: 20120309, end: 20120620

REACTIONS (1)
  - Drug ineffective [None]
